FAERS Safety Report 4851976-X (Version None)
Quarter: 2005Q4

REPORT INFORMATION
  Report Type: 
  Country: None (occurrence: None)
  Receive Date: 20051212
  Receipt Date: 20051212
  Transmission Date: 20060501
  Serious: No
  Sender: FDA-Public Use
  Company Number: None

PATIENT
  Age: 49 Year
  Sex: Male
  Weight: 145.6046 kg

DRUGS (2)
  1. VANCOMYCIN [Suspect]
     Indication: SEPSIS
     Dosage: 1 GM Q DAY IV
     Route: 042
     Dates: start: 20051118, end: 20051207
  2. GENTAMICIN [Suspect]
     Dosage: 80 MG Q 12 HR IV
     Route: 042
     Dates: start: 20051118, end: 20051207

REACTIONS (1)
  - RASH [None]
